FAERS Safety Report 10744998 (Version 4)
Quarter: 2015Q2

REPORT INFORMATION
  Report Type: Report from Study
  Country: US (occurrence: US)
  Receive Date: 20150128
  Receipt Date: 20150408
  Transmission Date: 20150821
  Serious: Yes (Other)
  Sender: FDA-Public Use
  Company Number: US-SA-2014SA129037

PATIENT
  Age: 64 Year
  Sex: Female
  Weight: 45.36 kg

DRUGS (5)
  1. AUBAGIO [Suspect]
     Active Substance: TERIFLUNOMIDE
     Indication: MULTIPLE SCLEROSIS
     Route: 048
     Dates: start: 20140907
  2. CLONAZEPAM. [Concomitant]
     Active Substance: CLONAZEPAM
     Indication: TREMOR
     Dosage: 1 DF: 0.5 MG
     Dates: start: 20141125
  3. LEVOTHYROXINE [Concomitant]
     Active Substance: LEVOTHYROXINE
     Indication: THYROID DISORDER
     Dosage: 1 DF: 25 MCG
     Dates: start: 20140730
  4. SINEMET [Concomitant]
     Active Substance: CARBIDOPA\LEVODOPA
     Indication: TREMOR
     Dates: start: 201409
  5. ACTONEL [Concomitant]
     Active Substance: RISEDRONATE SODIUM
     Indication: OSTEOPOROSIS
     Dosage: 150 MG
     Dates: start: 20141001

REACTIONS (21)
  - Tremor [Unknown]
  - Activities of daily living impaired [Unknown]
  - Tremor [Unknown]
  - Temperature intolerance [Unknown]
  - Muscular weakness [Unknown]
  - Arthralgia [Unknown]
  - Constipation [Unknown]
  - Memory impairment [Unknown]
  - Unevaluable event [Unknown]
  - Nasal congestion [Unknown]
  - Unevaluable event [Unknown]
  - Walking aid user [Unknown]
  - Headache [Unknown]
  - Alopecia [Not Recovered/Not Resolved]
  - Nasopharyngitis [Unknown]
  - Cough [Unknown]
  - Thyroid disorder [Unknown]
  - Urinary incontinence [Unknown]
  - Pain in extremity [Unknown]
  - Hearing impaired [Unknown]
  - Sneezing [Unknown]

NARRATIVE: CASE EVENT DATE: 2014
